FAERS Safety Report 10195096 (Version 1)
Quarter: 2014Q2

REPORT INFORMATION
  Report Type: Spontaneous
  Country: US (occurrence: US)
  Receive Date: 20140526
  Receipt Date: 20140526
  Transmission Date: 20141212
  Serious: Yes (Death, Hospitalization)
  Sender: FDA-Public Use
  Company Number: PHEH2014US010489

PATIENT
  Age: 77 Year
  Sex: Male

DRUGS (6)
  1. RECLAST [Suspect]
     Indication: OSTEOPOROSIS
     Dosage: UNK UKN, UNK
     Route: 042
     Dates: start: 201105
  2. PLAQUENIL [Concomitant]
     Dosage: UNK UKN, UNK
  3. IMURAN [Concomitant]
  4. PREDNISONE [Concomitant]
     Dosage: 5 TO 10 MG QD
  5. SPIRIVA [Concomitant]
     Dosage: UNK UKN, UNK
  6. FORADIL [Concomitant]
     Dosage: UNK UKN, UNK

REACTIONS (4)
  - Death [Fatal]
  - Iliac artery occlusion [Recovering/Resolving]
  - Arterial occlusive disease [Recovering/Resolving]
  - Femoral artery occlusion [Recovering/Resolving]
